FAERS Safety Report 19750798 (Version 2)
Quarter: 2022Q3

REPORT INFORMATION
  Report Type: Report from Study
  Country: IT (occurrence: IT)
  Receive Date: 20210826
  Receipt Date: 20220826
  Transmission Date: 20221026
  Serious: Yes (Life-Threatening)
  Sender: FDA-Public Use
  Company Number: IT-EXELIXIS-XL18421043543

PATIENT
  Age: 67 Year
  Sex: Male
  Weight: 70 kg

DRUGS (13)
  1. CABOZANTINIB [Suspect]
     Active Substance: CABOZANTINIB
     Indication: Thyroid cancer
     Dosage: 60 MG, QD
     Route: 048
     Dates: start: 20200827, end: 20210712
  2. MEGESTROL ACETATE [Concomitant]
     Active Substance: MEGESTROL ACETATE
  3. LYRICA [Concomitant]
     Active Substance: PREGABALIN
  4. CHOLECALCIFEROL [Concomitant]
     Active Substance: CHOLECALCIFEROL
  5. LANSOPRAZOLE [Concomitant]
     Active Substance: LANSOPRAZOLE
  6. LEVOTHYROXINE SODIUM [Concomitant]
     Active Substance: LEVOTHYROXINE SODIUM
  7. FENTANYL CITRATE [Concomitant]
     Active Substance: FENTANYL CITRATE
  8. ESCITALOPRAM OXALATE [Concomitant]
     Active Substance: ESCITALOPRAM OXALATE
  9. LOSARTAN [Concomitant]
     Active Substance: LOSARTAN
  10. ESIDREX [Concomitant]
     Active Substance: HYDROCHLOROTHIAZIDE
  11. CIPROFLOXACIN [Concomitant]
     Active Substance: CIPROFLOXACIN
  12. ENOXAPARIN [Concomitant]
     Active Substance: ENOXAPARIN
  13. FENTANYL [Concomitant]
     Active Substance: FENTANYL

REACTIONS (1)
  - Hypokalaemia [Recovered/Resolved]

NARRATIVE: CASE EVENT DATE: 20210712
